FAERS Safety Report 11699225 (Version 1)
Quarter: 2015Q4

REPORT INFORMATION
  Report Type: Spontaneous
  Country: US (occurrence: US)
  Receive Date: 20151104
  Receipt Date: 20151104
  Transmission Date: 20160304
  Serious: No
  Sender: FDA-Public Use
  Company Number: US-ANTARES PHARMA, INC.-2015-SPO-MX-0042

PATIENT
  Sex: Female

DRUGS (5)
  1. OTREXUP [Suspect]
     Active Substance: METHOTREXATE
     Indication: RHEUMATOID ARTHRITIS
     Dosage: 25 MG/0.4ML, QWK
     Route: 058
     Dates: start: 201503
  2. VITAMIN B12 [Concomitant]
     Active Substance: CYANOCOBALAMIN
  3. VITAMIN D                          /00107901/ [Concomitant]
     Active Substance: ERGOCALCIFEROL
  4. MAGNESIUM [Concomitant]
     Active Substance: MAGNESIUM
  5. CELEBREX [Suspect]
     Active Substance: CELECOXIB

REACTIONS (3)
  - Paraesthesia [None]
  - Diarrhoea [None]
  - Nausea [None]
